FAERS Safety Report 8551255-3 (Version None)
Quarter: 2012Q3

REPORT INFORMATION
  Report Type: 
  Country: None (occurrence: None)
  Receive Date: 20120730
  Receipt Date: 20120228
  Transmission Date: 20120928
  Serious: No
  Sender: FDA-Public Use
  Company Number: US-ALLERGAN-1202753US

PATIENT
  Age: 43 Year
  Sex: Female

DRUGS (3)
  1. REFRESH P.M. [Concomitant]
     Indication: DRY EYE
     Dosage: UNK
     Route: 047
  2. BLINK                              /00582501/ [Concomitant]
     Indication: DRY EYE
     Route: 047
  3. LATISSE [Suspect]
     Indication: GROWTH OF EYELASHES
     Dosage: 1 GTT, QHS
     Route: 061
     Dates: start: 20120215, end: 20120226

REACTIONS (3)
  - EYELIDS PRURITUS [None]
  - ERYTHEMA [None]
  - SKIN IRRITATION [None]
